FAERS Safety Report 9733773 (Version 1)
Quarter: 2013Q4

REPORT INFORMATION
  Report Type: Spontaneous
  Country: US (occurrence: US)
  Receive Date: 20131205
  Receipt Date: 20131205
  Transmission Date: 20140711
  Serious: Yes (Disabling, Other)
  Sender: FDA-Public Use
  Company Number: US-PFIZER INC-2013346523

PATIENT
  Age: 56 Year
  Sex: Female
  Weight: 68.03 kg

DRUGS (1)
  1. LYRICA [Suspect]
     Indication: NERVE INJURY
     Dosage: 75 MG, 2X/DAY
     Route: 048
     Dates: start: 2013

REACTIONS (6)
  - Off label use [Unknown]
  - Pain in extremity [Unknown]
  - Feeling abnormal [Unknown]
  - Disturbance in attention [Unknown]
  - Weight increased [Unknown]
  - Vitamin D deficiency [Unknown]
